FAERS Safety Report 25785953 (Version 1)
Quarter: 2025Q3

REPORT INFORMATION
  Report Type: Spontaneous
  Country: US (occurrence: US)
  Receive Date: 20250910
  Receipt Date: 20250910
  Transmission Date: 20251021
  Serious: Yes (Death, Hospitalization)
  Sender: MYLAN
  Company Number: US-MYLANLABS-2025M1075629

PATIENT
  Age: 26 Year
  Sex: Male

DRUGS (5)
  1. HYDROCORTISONE [Suspect]
     Active Substance: HYDROCORTISONE
     Indication: Adrenal insufficiency
  2. HYDROCORTISONE [Suspect]
     Active Substance: HYDROCORTISONE
     Indication: Adrenogenital syndrome
  3. ACYCLOVIR [Suspect]
     Active Substance: ACYCLOVIR
     Indication: Varicella zoster virus infection
  4. CEFTRIAXONE [Concomitant]
     Active Substance: CEFTRIAXONE
     Indication: Antibiotic therapy
  5. AZITHROMYCIN [Concomitant]
     Active Substance: AZITHROMYCIN
     Indication: Antibiotic therapy

REACTIONS (4)
  - Varicella zoster pneumonia [Fatal]
  - Viral myocarditis [Fatal]
  - Varicella zoster virus infection [Fatal]
  - Drug ineffective [Fatal]
